FAERS Safety Report 7002121-6 (Version None)
Quarter: 2010Q3

REPORT INFORMATION
  Report Type: 
  Country: None (occurrence: None)
  Receive Date: 20100920
  Receipt Date: 20070606
  Transmission Date: 20110219
  Serious: Yes (Other)
  Sender: FDA-Public Use
  Company Number: US-ASTRAZENECA-2006UW08299

PATIENT
  Age: 50 Year
  Sex: Male
  Weight: 95 kg

DRUGS (12)
  1. SEROQUEL [Suspect]
     Indication: MENTAL DISORDER
     Route: 048
     Dates: start: 19980101
  2. SEROQUEL [Suspect]
     Route: 048
  3. HALDOL/ HALDOL DECANOATE [Concomitant]
     Dosage: 100 MG - 125 MG
     Route: 048
     Dates: start: 20010922
  4. HALDOL/ HALDOL DECANOATE [Concomitant]
  5. RISPERDAL [Concomitant]
     Route: 048
     Dates: start: 20020822
  6. ZOLOFT [Concomitant]
     Route: 048
     Dates: start: 20020205, end: 20020508
  7. REMERON [Concomitant]
     Dosage: 30 MG AT NIGHT AS PER NECESSARY
     Route: 048
     Dates: start: 20020508, end: 20020905
  8. PAXIL [Concomitant]
     Dosage: 12.5 MG - 2.5 MG
     Route: 048
     Dates: start: 20020821
  9. WELLBUTRIN [Concomitant]
     Dosage: 150 MG - 300 MG
     Route: 048
     Dates: start: 20021217
  10. TOCOPHEROL CONCENTRATE CAP [Concomitant]
     Dates: start: 20021120, end: 20040510
  11. KLONOPIN [Concomitant]
     Route: 048
     Dates: start: 20060525
  12. HYDROXYZINE [Concomitant]
     Indication: ANXIETY
     Dosage: 50 MG TWO TIMES AS PER NECESSARY
     Route: 048
     Dates: start: 20011022

REACTIONS (3)
  - DIABETES MELLITUS [None]
  - NEUROLEPTIC MALIGNANT SYNDROME [None]
  - TYPE 2 DIABETES MELLITUS [None]
